FAERS Safety Report 9323858 (Version 2)
Quarter: 2013Q3

REPORT INFORMATION
  Report Type: Spontaneous
  Country: TR (occurrence: TR)
  Receive Date: 20130603
  Receipt Date: 20130702
  Transmission Date: 20140515
  Serious: Yes (Other)
  Sender: FDA-Public Use
  Company Number: TR-ASTELLAS-2013EU004667

PATIENT
  Sex: Male
  Weight: 2.07 kg

DRUGS (2)
  1. TACROLIMUS SYSTEMIC [Suspect]
     Indication: FOETAL EXPOSURE DURING PREGNANCY
     Dosage: 1 MG, BID
     Route: 064
  2. AZATHIOPRINE [Concomitant]
     Indication: FOETAL EXPOSURE DURING PREGNANCY
     Dosage: 25 MG, BID
     Route: 064

REACTIONS (2)
  - Premature baby [Unknown]
  - Low birth weight baby [Unknown]
